FAERS Safety Report 5007532-6 (Version None)
Quarter: 2006Q2

REPORT INFORMATION
  Report Type: 
  Country: None (occurrence: None)
  Receive Date: 20060522
  Receipt Date: 20060511
  Transmission Date: 20061013
  Serious: Yes (Disabling)
  Sender: FDA-Public Use
  Company Number: US-MERCK-0605USA02073

PATIENT
  Age: 56 Year
  Sex: Female

DRUGS (8)
  1. SINGULAIR [Suspect]
     Indication: RHINITIS ALLERGIC
     Route: 048
     Dates: start: 20060425, end: 20060425
  2. CLARITIN [Concomitant]
     Route: 065
  3. NASONEX [Concomitant]
     Route: 065
  4. NULEV [Concomitant]
     Route: 065
  5. CALAN [Concomitant]
     Route: 065
  6. ESGIC-PLUS TABLETS [Concomitant]
     Route: 065
  7. IMITREX [Concomitant]
     Indication: MIGRAINE
     Route: 065
  8. SINGULAIR [Suspect]
     Indication: HYPERSENSITIVITY
     Route: 048
     Dates: start: 20060425, end: 20060425

REACTIONS (2)
  - MUSCLE SPASMS [None]
  - MYALGIA [None]
